FAERS Safety Report 8484088-7 (Version None)
Quarter: 2012Q3

REPORT INFORMATION
  Report Type: 
  Country: None (occurrence: None)
  Receive Date: 20120703
  Receipt Date: 20120622
  Transmission Date: 20120928
  Serious: Yes (Hospitalization)
  Sender: FDA-Public Use
  Company Number: US-CELGENEUS-163-21880-12040093

PATIENT
  Sex: Female
  Weight: 99.88 kg

DRUGS (12)
  1. VITAMIN D [Concomitant]
     Route: 065
  2. FLUOXETINE [Concomitant]
     Dosage: 20 MILLIGRAM
     Route: 048
  3. PRAVASTATIN [Concomitant]
     Route: 065
  4. DEXAMETHASONE [Concomitant]
     Indication: MULTIPLE MYELOMA
     Route: 065
  5. ZOSYN [Concomitant]
     Route: 065
  6. VITAMIN D [Concomitant]
     Dosage: 50,000 UNITS/1
     Route: 065
  7. HYDROCODONE BITARTRATE + ACETAMINOPHEN [Concomitant]
     Dosage: 5/500MG - 1 OR 2
     Route: 048
  8. REVLIMID [Suspect]
     Indication: MULTIPLE MYELOMA
     Dosage: 25 MILLIGRAM
     Route: 048
     Dates: start: 20120214, end: 20120327
  9. LOVAZA [Concomitant]
     Route: 065
  10. VESICARE [Concomitant]
     Dosage: 10 MILLIGRAM
     Route: 048
  11. CALCIUM [Concomitant]
     Route: 065
  12. IBUPROFEN [Concomitant]
     Route: 065

REACTIONS (5)
  - PULMONARY EMBOLISM [None]
  - COLONIC STENOSIS [None]
  - DEEP VEIN THROMBOSIS [None]
  - COLITIS [None]
  - URINARY TRACT INFECTION [None]
